FAERS Safety Report 17447541 (Version 1)
Quarter: 2020Q1

REPORT INFORMATION
  Report Type: Spontaneous
  Country: US (occurrence: US)
  Receive Date: 20200221
  Receipt Date: 20200221
  Transmission Date: 20200409
  Serious: Yes (Other)
  Sender: FDA-Public Use
  Company Number: US-ANIPHARMA-2020-US-003668

PATIENT
  Sex: Male

DRUGS (3)
  1. NON-COMPANY DRUG PRODUCT [Suspect]
     Active Substance: UNSPECIFIED INGREDIENT
     Dosage: 4 MG DAILY / 2 MG DAILY
     Route: 065
  2. ^BESYL SOMETHING^ [Concomitant]
     Dosage: UNK
     Route: 065
  3. CANDESARTAN CILEXETIL. [Suspect]
     Active Substance: CANDESARTAN CILEXETIL
     Indication: BLOOD PRESSURE MEASUREMENT
     Dosage: 8 MG DAILY / 6 MG DAILY
     Route: 065
     Dates: start: 2015

REACTIONS (4)
  - Unevaluable event [Unknown]
  - Hypotension [Unknown]
  - Hypertension [Unknown]
  - Paralysis [Not Recovered/Not Resolved]
